FAERS Safety Report 24661498 (Version 1)
Quarter: 2024Q4

REPORT INFORMATION
  Report Type: Spontaneous
  Country: FR (occurrence: FR)
  Receive Date: 20241125
  Receipt Date: 20241125
  Transmission Date: 20250115
  Serious: Yes (Other)
  Sender: B BRAUN
  Company Number: FR-B.Braun Medical Inc.-2165868

PATIENT
  Age: 26 Year
  Sex: Male
  Weight: 65 kg

DRUGS (2)
  1. ACETAMINOPHEN [Suspect]
     Active Substance: ACETAMINOPHEN
  2. TRAMADOL [Suspect]
     Active Substance: TRAMADOL

REACTIONS (6)
  - Malaise [Unknown]
  - Drug dependence [Unknown]
  - Drug use disorder [Unknown]
  - Miosis [Unknown]
  - Tachycardia [Unknown]
  - Hyperhidrosis [Unknown]
